FAERS Safety Report 10375310 (Version 2)
Quarter: 2014Q4

REPORT INFORMATION
  Report Type: Spontaneous
  Country: JP (occurrence: None)
  Receive Date: 20140806
  Receipt Date: 20141117
  Transmission Date: 20150528
  Serious: Yes (Other)
  Sender: FDA-Public Use
  Company Number: JP-016621

PATIENT
  Age: 67 Year
  Sex: Male
  Weight: 79 kg

DRUGS (6)
  1. DEGARELIX (GONAX) 80MG [Suspect]
     Active Substance: DEGARELIX
     Indication: PROSTATE CANCER METASTATIC
     Route: 058
     Dates: start: 20130723, end: 20130723
  2. BAYASPIRIN [Concomitant]
     Active Substance: ASPIRIN
  3. BLOPRESS [Concomitant]
     Active Substance: CANDESARTAN CILEXETIL
  4. RANMARK [Concomitant]
     Active Substance: DENOSUMAB
  5. BEZATOL [Concomitant]
     Active Substance: BEZAFIBRATE
  6. AMLODIN [Concomitant]
     Active Substance: AMLODIPINE BESYLATE

REACTIONS (1)
  - Diabetes mellitus [None]

NARRATIVE: CASE EVENT DATE: 20140401
